FAERS Safety Report 14995383 (Version 1)
Quarter: 2018Q2

REPORT INFORMATION
  Report Type: Spontaneous
  Country: US (occurrence: US)
  Receive Date: 20180611
  Receipt Date: 20180611
  Transmission Date: 20180711
  Serious: No
  Sender: FDA-Public Use
  Company Number: US-SA-2018SA148270

PATIENT
  Sex: Male

DRUGS (4)
  1. HYDROXYZINE [Concomitant]
     Active Substance: HYDROXYZINE HYDROCHLORIDE
     Indication: PRURITUS
  2. DUPIXENT [Suspect]
     Active Substance: DUPILUMAB
     Indication: DERMATITIS ATOPIC
     Route: 051
  3. TACROLIMUS. [Concomitant]
     Active Substance: TACROLIMUS
  4. RANITIDINE. [Concomitant]
     Active Substance: RANITIDINE
     Indication: PRURITUS

REACTIONS (3)
  - Acne [Unknown]
  - Drug ineffective [Unknown]
  - Graft versus host disease [Not Recovered/Not Resolved]
